FAERS Safety Report 25105991 (Version 1)
Quarter: 2025Q1

REPORT INFORMATION
  Report Type: Spontaneous
  Country: US (occurrence: US)
  Receive Date: 20250321
  Receipt Date: 20250321
  Transmission Date: 20250408
  Serious: Yes (Other)
  Sender: CATALYST PHARMA
  Company Number: US-CATALYST PHARMACEUTICALS-US-CATA-24-00476

PATIENT
  Age: 6 Year
  Sex: Male

DRUGS (5)
  1. AGAMREE [Suspect]
     Active Substance: VAMOROLONE
     Indication: Duchenne muscular dystrophy
     Route: 048
     Dates: start: 202404
  2. PREDNISONE [Suspect]
     Active Substance: PREDNISONE
     Indication: Product used for unknown indication
     Route: 065
     Dates: start: 202301
  3. VYONDYS [Concomitant]
     Indication: Product used for unknown indication
     Route: 065
     Dates: start: 202307, end: 202410
  4. ELEVIDYS [Concomitant]
     Active Substance: DELANDISTROGENE MOXEPARVOVEC-ROKL
     Indication: Product used for unknown indication
     Route: 065
     Dates: start: 20241204
  5. GENE THERAPY [Concomitant]
     Indication: Product used for unknown indication
     Route: 065

REACTIONS (7)
  - Autism spectrum disorder [Unknown]
  - Fall [Unknown]
  - Ligament sprain [Recovering/Resolving]
  - Coordination abnormal [Unknown]
  - Contusion [Unknown]
  - Emotional disorder [Unknown]
  - Weight increased [Not Recovered/Not Resolved]

NARRATIVE: CASE EVENT DATE: 20240301
